FAERS Safety Report 7396789-2 (Version None)
Quarter: 2011Q2

REPORT INFORMATION
  Report Type: 
  Country: None (occurrence: None)
  Receive Date: 20110406
  Receipt Date: 20110331
  Transmission Date: 20111010
  Serious: Yes (Life-Threatening)
  Sender: FDA-Public Use
  Company Number: DE-ROCHE-769500

PATIENT
  Age: 52 Year
  Sex: Female
  Weight: 89 kg

DRUGS (8)
  1. CYTARABINE [Suspect]
     Dosage: CYCLIC 1-7
     Route: 065
     Dates: start: 20110223
  2. POSACONAZOLE [Concomitant]
     Dates: start: 20110301, end: 20110302
  3. ETOPOSIDE [Suspect]
     Dosage: CYCLIC DAY 1-3
     Route: 042
     Dates: start: 20110223
  4. MORPHINE [Concomitant]
     Route: 042
     Dates: start: 20110304
  5. GEMTUZUMAB OZOGAMICIN [Suspect]
     Dosage: CYCLIC DAY 1
     Route: 042
     Dates: start: 20110223
  6. IDARUBICIN HCL [Suspect]
     Dosage: CYCLIC 1,3,5
     Route: 042
     Dates: start: 20110223
  7. POSACONAZOLE [Concomitant]
     Dates: start: 20110302
  8. TRETINOIN [Suspect]
     Dosage: CYCLIC,
     Route: 042
     Dates: start: 20110228

REACTIONS (1)
  - SEPSIS [None]
